FAERS Safety Report 15352424 (Version 1)
Quarter: 2018Q3

REPORT INFORMATION
  Report Type: Spontaneous
  Country: FR (occurrence: FR)
  Receive Date: 20180905
  Receipt Date: 20180905
  Transmission Date: 20181010
  Serious: Yes (Hospitalization)
  Sender: FDA-Public Use
  Company Number: FR-GLAXOSMITHKLINE-FR2018157451

PATIENT
  Age: 61 Year
  Sex: Male

DRUGS (2)
  1. LAMICTAL [Suspect]
     Active Substance: LAMOTRIGINE
     Indication: EPILEPSY
     Dosage: 200 MG, QD
     Route: 048
     Dates: start: 20180706, end: 20180814
  2. DEPAKINE [Suspect]
     Active Substance: VALPROATE SODIUM
     Indication: EPILEPSY
     Dosage: 1000 MG, QD
     Route: 048
     Dates: start: 20100101

REACTIONS (2)
  - Rash maculo-papular [Recovering/Resolving]
  - Oral mucosa erosion [Recovering/Resolving]

NARRATIVE: CASE EVENT DATE: 20180725
